FAERS Safety Report 12673492 (Version 1)
Quarter: 2016Q3

REPORT INFORMATION
  Report Type: Spontaneous
  Country: US (occurrence: US)
  Receive Date: 20160822
  Receipt Date: 20160822
  Transmission Date: 20161109
  Serious: Yes (Hospitalization)
  Sender: FDA-Public Use
  Company Number: US-BEH-2016063042

PATIENT
  Age: 50 Year
  Sex: Female
  Weight: 81.65 kg

DRUGS (25)
  1. ZEMAIRA [Suspect]
     Active Substance: .ALPHA.1-PROTEINASE INHIBITOR HUMAN
     Indication: EMPHYSEMA
     Route: 042
     Dates: start: 20090224
  2. DOXYCYCLINE. [Concomitant]
     Active Substance: DOXYCYCLINE
  3. PREDNISONE. [Concomitant]
     Active Substance: PREDNISONE
  4. CEPHALEXIN. [Concomitant]
     Active Substance: CEPHALEXIN
  5. OXYGEN. [Concomitant]
     Active Substance: OXYGEN
  6. LIDOCAINE / PRILOCAINE [Concomitant]
  7. DIPHENHYDRAMINE. [Concomitant]
     Active Substance: DIPHENHYDRAMINE
  8. LANTUS [Concomitant]
     Active Substance: INSULIN GLARGINE
  9. SODIUM CHLORIDE. [Concomitant]
     Active Substance: SODIUM CHLORIDE
  10. TYLENOL-CODEINE NO 3 [Concomitant]
  11. JANUVIA [Concomitant]
     Active Substance: SITAGLIPTIN PHOSPHATE
  12. GABAPENTIN. [Concomitant]
     Active Substance: GABAPENTIN
  13. ENBREL [Concomitant]
     Active Substance: ETANERCEPT
  14. EPIPEN [Concomitant]
     Active Substance: EPINEPHRINE
  15. CINNAMON. [Concomitant]
     Active Substance: CINNAMON
  16. CLOBETASOL [Concomitant]
     Active Substance: CLOBETASOL
  17. MUPIROCIN. [Concomitant]
     Active Substance: MUPIROCIN
  18. IPRATROPIUM-ALBUTEROL [Concomitant]
     Active Substance: ALBUTEROL\IPRATROPIUM
  19. IBUPROFEN. [Concomitant]
     Active Substance: IBUPROFEN
  20. METFORMIN [Concomitant]
     Active Substance: METFORMIN HYDROCHLORIDE
  21. ALBUTEROL. [Concomitant]
     Active Substance: ALBUTEROL
  22. PAXIL [Concomitant]
     Active Substance: PAROXETINE HYDROCHLORIDE
  23. METOPROLOL SUCCINATE. [Concomitant]
     Active Substance: METOPROLOL SUCCINATE
  24. SORIATANE [Concomitant]
     Active Substance: ACITRETIN
  25. VENTOLIN [Concomitant]
     Active Substance: ALBUTEROL SULFATE

REACTIONS (1)
  - Dyspnoea [Unknown]

NARRATIVE: CASE EVENT DATE: 20160522
